FAERS Safety Report 9669800 (Version 1)
Quarter: 2013Q4

REPORT INFORMATION
  Report Type: Spontaneous
  Country: US (occurrence: US)
  Receive Date: 20131105
  Receipt Date: 20131105
  Transmission Date: 20140711
  Serious: Yes (Other)
  Sender: FDA-Public Use
  Company Number: US-MYLANLABS-2013S1002832

PATIENT
  Age: 33 Year
  Sex: Male
  Weight: 97.52 kg

DRUGS (5)
  1. NADOLOL TABLETS, USP [Suspect]
     Indication: BLOOD PRESSURE INCREASED
     Route: 048
     Dates: start: 20130203, end: 20130205
  2. NEXIUM [Concomitant]
  3. ATIVAN [Concomitant]
  4. ZYPREXA [Concomitant]
  5. ZOLOFT [Concomitant]

REACTIONS (4)
  - Drug ineffective [Recovering/Resolving]
  - Blood pressure increased [Recovering/Resolving]
  - Heart rate decreased [Recovered/Resolved]
  - Headache [Recovered/Resolved]
